FAERS Safety Report 16644724 (Version 1)
Quarter: 2019Q3

REPORT INFORMATION
  Report Type: Spontaneous
  Country: US (occurrence: US)
  Receive Date: 20190729
  Receipt Date: 20190729
  Transmission Date: 20191004
  Serious: No
  Sender: FDA-Public Use
  Company Number: US-SA-2019SA197768

PATIENT
  Sex: Female

DRUGS (3)
  1. TOUJEO [Suspect]
     Active Substance: INSULIN GLARGINE
     Dosage: 30 U, HS
     Route: 065
  2. NOVOLOG [Suspect]
     Active Substance: INSULIN ASPART
     Dosage: UNK UNK, UNK
     Route: 065
  3. TOUJEO [Suspect]
     Active Substance: INSULIN GLARGINE
     Dosage: 15 U, QD
     Route: 065

REACTIONS (3)
  - Blood glucose decreased [Unknown]
  - Intentional product use issue [Unknown]
  - Weight decreased [Unknown]
